FAERS Safety Report 18529245 (Version 2)
Quarter: 2020Q4

REPORT INFORMATION
  Report Type: Report from Study
  Country: US (occurrence: US)
  Receive Date: 20201120
  Receipt Date: 20201223
  Transmission Date: 20210114
  Serious: Yes (Hospitalization, Other)
  Sender: FDA-Public Use
  Company Number: US-EXELIXIS-CABO-20033126

PATIENT
  Sex: Male

DRUGS (1)
  1. CABOMETYX [Suspect]
     Active Substance: CABOZANTINIB S-MALATE
     Indication: HEPATOCELLULAR CARCINOMA
     Dosage: 40 MG, QD
     Dates: start: 20200828

REACTIONS (4)
  - Blood pressure increased [Recovering/Resolving]
  - Blister [Unknown]
  - Decreased appetite [Not Recovered/Not Resolved]
  - Localised infection [Not Recovered/Not Resolved]
